FAERS Safety Report 14656415 (Version 2)
Quarter: 2018Q2

REPORT INFORMATION
  Report Type: Report from Study
  Country: None (occurrence: JP)
  Receive Date: 20180319
  Receipt Date: 20180410
  Transmission Date: 20180711
  Serious: Yes (Hospitalization)
  Sender: FDA-Public Use
  Company Number: JP-ABBVIE-18K-087-2290409-00

PATIENT
  Age: 34 Year
  Sex: Female
  Weight: 62 kg

DRUGS (6)
  1. COLCHICINE. [Concomitant]
     Active Substance: COLCHICINE
     Indication: UVEITIS
     Route: 048
  2. BETAMETHASONE SODIUM PHOSPHATE [Concomitant]
     Active Substance: BETAMETHASONE SODIUM PHOSPHATE
     Indication: UVEITIS
     Dosage: Q.S.
     Route: 047
  3. DEXAMETHASONE SODIUM PHOSPHATE. [Concomitant]
     Active Substance: DEXAMETHASONE SODIUM PHOSPHATE
     Indication: UVEITIS
     Route: 057
     Dates: start: 20170429, end: 20170429
  4. HUMIRA [Suspect]
     Active Substance: ADALIMUMAB
     Indication: UVEITIS
     Route: 058
     Dates: start: 20170314, end: 20170314
  5. HUMIRA [Suspect]
     Active Substance: ADALIMUMAB
     Route: 058
     Dates: start: 20170328
  6. COLCHICINE. [Concomitant]
     Active Substance: COLCHICINE
     Route: 048
     Dates: end: 20170530

REACTIONS (3)
  - Alanine aminotransferase increased [Not Recovered/Not Resolved]
  - Cataract [Recovered/Resolved]
  - Angle closure glaucoma [Recovered/Resolved]

NARRATIVE: CASE EVENT DATE: 20170428
